FAERS Safety Report 5106750-6 (Version None)
Quarter: 2006Q3

REPORT INFORMATION
  Report Type: 
  Country: None (occurrence: None)
  Receive Date: 20060731
  Receipt Date: 20050802
  Transmission Date: 20061208
  Serious: Yes (Other)
  Sender: FDA-Public Use
  Company Number: US-JNJFOC-20050801188

PATIENT
  Age: 35 Year
  Sex: Female

DRUGS (8)
  1. RISPERDAL [Suspect]
     Indication: BIPOLAR DISORDER
     Dosage: 1 MG, IN 1 DAY,ORAL
     Route: 048
     Dates: start: 20050701
  2. TOPAMAX [Concomitant]
  3. LASIX [Concomitant]
  4. ZANAX (ALPRAZOLAM) [Concomitant]
  5. PRILOSEC [Concomitant]
  6. PHENERGAN (PROMETHAZINE HYDROCHLORIDE) [Concomitant]
  7. CLONIDINE [Concomitant]
  8. LORTAB [Concomitant]

REACTIONS (5)
  - AGGRESSION [None]
  - DRUG WITHDRAWAL SYNDROME [None]
  - INSOMNIA [None]
  - RESTLESSNESS [None]
  - SUICIDAL IDEATION [None]
